FAERS Safety Report 18995511 (Version 1)
Quarter: 2021Q1

REPORT INFORMATION
  Report Type: Spontaneous
  Country: US (occurrence: US)
  Receive Date: 20210306
  Receipt Date: 20210306
  Transmission Date: 20210420
  Serious: No
  Sender: FDA-Public Use
  Company Number: None

PATIENT

DRUGS (1)
  1. PURICIA SANITIZING WIPES [Suspect]
     Active Substance: ALCOHOL
     Route: 061

REACTIONS (2)
  - Product use in unapproved indication [None]
  - Product label issue [None]

NARRATIVE: CASE EVENT DATE: 20210302
